FAERS Safety Report 25056620 (Version 1)
Quarter: 2025Q1

REPORT INFORMATION
  Report Type: Spontaneous
  Country: IT (occurrence: IT)
  Receive Date: 20250310
  Receipt Date: 20250310
  Transmission Date: 20250409
  Serious: Yes (Other)
  Sender: AMGEN
  Company Number: IT-PFIZER INC-PV202500024312

PATIENT
  Age: 59 Year
  Sex: Male

DRUGS (2)
  1. ENBREL [Suspect]
     Active Substance: ETANERCEPT
     Indication: Ankylosing spondylitis
     Dosage: 0.50 (UNIT UNKNOWN), WEEKLY
     Route: 065
     Dates: start: 2006, end: 2023
  2. ENBREL [Suspect]
     Active Substance: ETANERCEPT
     Indication: Uveitis
     Dosage: 1.05 (UNIT UNKNOWN), 2X/WEEK
     Route: 065
     Dates: start: 2009

REACTIONS (5)
  - Uveitis [Unknown]
  - Condition aggravated [Unknown]
  - Blindness unilateral [Unknown]
  - Psoriasis [Unknown]
  - Drug ineffective [Unknown]

NARRATIVE: CASE EVENT DATE: 20070101
